FAERS Safety Report 5045249-2 (Version None)
Quarter: 2006Q3

REPORT INFORMATION
  Report Type: 
  Country: None (occurrence: None)
  Receive Date: 20060705
  Receipt Date: 20060615
  Transmission Date: 20061208
  Serious: Yes (Other)
  Sender: FDA-Public Use
  Company Number: US200606003554

PATIENT
  Sex: Female

DRUGS (1)
  1. ZYPREXA [Suspect]
     Indication: SCHIZOAFFECTIVE DISORDER
     Dosage: 5 MG,; 20 MG, DAILY (1/D); 10 MG, 2/D

REACTIONS (4)
  - ABNORMAL BEHAVIOUR [None]
  - EATING DISORDER [None]
  - HALLUCINATION, AUDITORY [None]
  - MENTAL STATUS CHANGES [None]
